FAERS Safety Report 4463395-9 (Version None)
Quarter: 2004Q3

REPORT INFORMATION
  Report Type: 
  Country: None (occurrence: None)
  Receive Date: 20040928
  Receipt Date: 20040920
  Transmission Date: 20050211
  Serious: Yes (Hospitalization)
  Sender: FDA-Public Use
  Company Number: 185483

PATIENT
  Age: 55 Year
  Sex: Female
  Weight: 60.782 kg

DRUGS (5)
  1. AVONEX [Suspect]
     Indication: MULTIPLE SCLEROSIS
     Dosage: 30 MGG QW IM
     Route: 030
     Dates: start: 20010420, end: 20030801
  2. AVONEX [Suspect]
     Indication: MULTIPLE SCLEROSIS
     Dosage: 30 MCG QW IM
     Route: 030
     Dates: start: 20010401, end: 20030801
  3. AVONEX [Suspect]
     Indication: MULTIPLE SCLEROSIS
     Dosage: 30 MCG QW IM
     Route: 030
     Dates: start: 20030101, end: 20031030
  4. ESTROGEN [Concomitant]
  5. TEGRETOL [Concomitant]

REACTIONS (8)
  - CHILLS [None]
  - CORONARY ARTERY DISSECTION [None]
  - CORONARY ARTERY OCCLUSION [None]
  - HYPERTENSION [None]
  - INFLUENZA LIKE ILLNESS [None]
  - MYOCARDIAL INFARCTION [None]
  - PAIN [None]
  - PYREXIA [None]
